FAERS Safety Report 8055699-8 (Version None)
Quarter: 2012Q1

REPORT INFORMATION
  Report Type: 
  Country: None (occurrence: None)
  Receive Date: 20120119
  Receipt Date: 20120117
  Transmission Date: 20120608
  Serious: Yes (Other)
  Sender: FDA-Public Use
  Company Number: US-JNJFOC-20120106652

PATIENT
  Age: 49 Year
  Sex: Male

DRUGS (1)
  1. NUCYNTA [Suspect]
     Indication: SCIATICA
     Route: 065

REACTIONS (1)
  - SCHIZOPHRENIA [None]
